FAERS Safety Report 9970058 (Version 1)
Quarter: 2014Q1

REPORT INFORMATION
  Report Type: Spontaneous
  Country: US (occurrence: None)
  Receive Date: 20140131
  Receipt Date: 20140131
  Transmission Date: 20141002
  Serious: Yes (Hospitalization, Other)
  Sender: FDA-Public Use
  Company Number: 096244

PATIENT
  Sex: Female
  Weight: 69.9 kg

DRUGS (12)
  1. KEPPRA [Suspect]
     Indication: CONVULSION
     Route: 048
  2. DIFLUCAN [Concomitant]
  3. MECLIZINE HYDROCHLORIDE [Concomitant]
  4. OMEGA-3 FATTY ACIDS [Concomitant]
  5. AMLODIPINE BESYLATE [Concomitant]
  6. OMEPRAZOLE [Concomitant]
  7. VITAMIN D3 [Concomitant]
  8. CALCIUM D-500 [Concomitant]
  9. ACETAMINOPHEN [Concomitant]
  10. IBUPROFEN [Concomitant]
  11. KETOCONAZOLE [Concomitant]
  12. VERAPAMIL [Concomitant]

REACTIONS (2)
  - Convulsion [None]
  - Inappropriate schedule of drug administration [None]
